FAERS Safety Report 8511756-0 (Version None)
Quarter: 2012Q3

REPORT INFORMATION
  Report Type: 
  Country: None (occurrence: None)
  Receive Date: 20120716
  Receipt Date: 20120709
  Transmission Date: 20120928
  Serious: Yes (Other)
  Sender: FDA-Public Use
  Company Number: US-BAYER-2012-069265

PATIENT
  Age: 72 Year
  Sex: Female
  Weight: 68 kg

DRUGS (3)
  1. ACETAMINOPHEN [Concomitant]
  2. ANTIHYPERTENSIVES [Concomitant]
  3. ALEVE (CAPLET) [Suspect]
     Indication: ARTHRITIS
     Dosage: 2 DF, TID
     Route: 048
     Dates: start: 20120625, end: 20120709

REACTIONS (4)
  - MUSCLE SPASMS [None]
  - ASTHENIA [None]
  - ARTHRALGIA [None]
  - ABASIA [None]
